FAERS Safety Report 5538446-0 (Version None)
Quarter: 2007Q4

REPORT INFORMATION
  Report Type: 
  Country: None (occurrence: None)
  Receive Date: 20071205
  Receipt Date: 20071119
  Transmission Date: 20080405
  Serious: Yes (Other)
  Sender: FDA-Public Use
  Company Number: 8028297

PATIENT
  Sex: Female

DRUGS (2)
  1. KEPPRA [Suspect]
     Dosage: 500 MG 2/D; PO
     Route: 048
     Dates: end: 20071101
  2. KEPPRA [Suspect]
     Dosage: 250 MG 2/D; PO
     Route: 048
     Dates: start: 20071101

REACTIONS (2)
  - ATRIOVENTRICULAR BLOCK FIRST DEGREE [None]
  - BRADYCARDIA [None]
